FAERS Safety Report 11643920 (Version 1)
Quarter: 2015Q4

REPORT INFORMATION
  Report Type: Spontaneous
  Country: US (occurrence: None)
  Receive Date: 20151019
  Receipt Date: 20151019
  Transmission Date: 20160304
  Serious: Yes (Life-Threatening, Disabling, Other)
  Sender: FDA-Public Use
  Company Number: None

PATIENT
  Age: 7 Month
  Sex: Female
  Weight: 47.63 kg

DRUGS (4)
  1. ABILIFY [Suspect]
     Active Substance: ARIPIPRAZOLE
     Indication: BIPOLAR DISORDER
     Dosage: ONE PILL IN THE EVENINGS
     Route: 048
     Dates: start: 20150708, end: 20151001
  2. ABILIFY [Suspect]
     Active Substance: ARIPIPRAZOLE
     Indication: DEPRESSION
     Dosage: ONE PILL IN THE EVENINGS
     Route: 048
     Dates: start: 20150708, end: 20151001
  3. LATUDA [Suspect]
     Active Substance: LURASIDONE HYDROCHLORIDE
     Indication: DRUG THERAPY
     Dosage: 1 PILL IN THE EVENINGS
     Route: 048
     Dates: start: 20150914, end: 20151003
  4. MULTI VITAMINS [Concomitant]

REACTIONS (15)
  - Disorientation [None]
  - Vomiting [None]
  - Paranoia [None]
  - Mental impairment [None]
  - Disturbance in attention [None]
  - Victim of abuse [None]
  - Homicidal ideation [None]
  - Peripheral swelling [None]
  - Constipation [None]
  - Hallucination, auditory [None]
  - Movement disorder [None]
  - Suicide attempt [None]
  - Malaise [None]
  - Depression [None]
  - Feeling abnormal [None]

NARRATIVE: CASE EVENT DATE: 20150805
